FAERS Safety Report 6174610-8 (Version None)
Quarter: 2009Q2

REPORT INFORMATION
  Report Type: 
  Country: None (occurrence: None)
  Receive Date: 20090430
  Receipt Date: 20080812
  Transmission Date: 20091009
  Serious: No
  Sender: FDA-Public Use
  Company Number: US-ASTRAZENECA-2008UW16782

PATIENT
  Age: 47 Year
  Sex: Male
  Weight: 83.9 kg

DRUGS (7)
  1. NEXIUM [Suspect]
     Indication: GASTROOESOPHAGEAL REFLUX DISEASE
     Route: 048
     Dates: start: 20020101
  2. NEXIUM [Suspect]
     Indication: DYSPEPSIA
     Route: 048
     Dates: start: 20020101
  3. PAXIL [Concomitant]
  4. ATACAND [Concomitant]
  5. TOPROL-XL [Concomitant]
  6. XANAX [Concomitant]
     Dosage: 1 MG
  7. CRESTOR [Concomitant]
     Dates: start: 20020101

REACTIONS (10)
  - ABDOMINAL DISTENSION [None]
  - ABDOMINAL PAIN [None]
  - AMNESIA [None]
  - ARTHRALGIA [None]
  - ARTHRITIS [None]
  - DIARRHOEA [None]
  - FLATULENCE [None]
  - GASTROOESOPHAGEAL REFLUX DISEASE [None]
  - LIMB INJURY [None]
  - OSTEOARTHRITIS [None]
